FAERS Safety Report 15041031 (Version 1)
Quarter: 2018Q2

REPORT INFORMATION
  Report Type: Report from Study
  Country: US (occurrence: US)
  Receive Date: 20180621
  Receipt Date: 20180621
  Transmission Date: 20180711
  Serious: Yes (Hospitalization)
  Sender: FDA-Public Use
  Company Number: US-AMGEN-USACT2018081847

PATIENT
  Age: 70 Year
  Sex: Male

DRUGS (12)
  1. CARVEDILOL. [Concomitant]
     Active Substance: CARVEDILOL
     Dosage: UNK
  2. DARATUMUMAB [Concomitant]
     Active Substance: DARATUMUMAB
     Dosage: UNK
  3. REVLIMID [Suspect]
     Active Substance: LENALIDOMIDE
     Indication: PLASMA CELL MYELOMA
     Dosage: 25 MG, PER CHEMO REGIM
     Route: 048
     Dates: start: 20180507
  4. DEXAMETHASONE. [Concomitant]
     Active Substance: DEXAMETHASONE
     Dosage: UNK
  5. DOXYCYCLINE. [Concomitant]
     Active Substance: DOXYCYCLINE
     Dosage: UNK
  6. MONTELUKAST [Concomitant]
     Active Substance: MONTELUKAST SODIUM
     Dosage: UNK
  7. ATORVASTATIN [Concomitant]
     Active Substance: ATORVASTATIN
     Dosage: UNK
  8. METFORMIN [Concomitant]
     Active Substance: METFORMIN HYDROCHLORIDE
     Dosage: UNK
  9. CLOPIDOGREL BISULFATE. [Concomitant]
     Active Substance: CLOPIDOGREL BISULFATE
     Dosage: UNK
  10. RAMIPRIL. [Concomitant]
     Active Substance: RAMIPRIL
     Dosage: UNK
  11. CARFILZOMIB [Suspect]
     Active Substance: CARFILZOMIB
     Indication: PLASMA CELL MYELOMA
     Dosage: UNK, PER CHEMO REGIM
     Route: 065
  12. ASPIRIN. [Concomitant]
     Active Substance: ASPIRIN
     Dosage: UNK
     Dates: start: 20180508

REACTIONS (3)
  - Pulmonary embolism [Unknown]
  - Distributive shock [Unknown]
  - Right ventricular dysfunction [Unknown]

NARRATIVE: CASE EVENT DATE: 20180528
